FAERS Safety Report 9959709 (Version 1)
Quarter: 2014Q1

REPORT INFORMATION
  Report Type: Spontaneous
  Country: US (occurrence: US)
  Receive Date: 20140305
  Receipt Date: 20140305
  Transmission Date: 20141002
  Serious: No
  Sender: FDA-Public Use
  Company Number: US-ABBVIE-13P-163-1103000-00

PATIENT
  Age: 62 Year
  Sex: Female

DRUGS (2)
  1. HUMIRA [Suspect]
     Indication: PSORIATIC ARTHROPATHY
     Dosage: LOADING DOSE
     Route: 058
     Dates: start: 20130528
  2. ALLEGRA [Concomitant]
     Indication: PRODUCT USED FOR UNKNOWN INDICATION
     Dosage: PRN

REACTIONS (8)
  - Somnolence [Unknown]
  - Headache [Unknown]
  - Pain in extremity [Unknown]
  - Back pain [Unknown]
  - Burning sensation [Unknown]
  - Pruritus [Unknown]
  - Product taste abnormal [Unknown]
  - Pruritus generalised [Unknown]
